FAERS Safety Report 6782948-6 (Version None)
Quarter: 2010Q2

REPORT INFORMATION
  Report Type: 
  Country: None (occurrence: None)
  Receive Date: 20100622
  Receipt Date: 20100618
  Transmission Date: 20101027
  Serious: Yes (Death, Hospitalization, Other)
  Sender: FDA-Public Use
  Company Number: HQWYE099511SEP07

PATIENT
  Sex: Male
  Weight: 104 kg

DRUGS (8)
  1. PROGRAF [Suspect]
     Indication: PROPHYLAXIS AGAINST TRANSPLANT REJECTION
     Route: 048
     Dates: start: 20061207, end: 20071120
  2. PROGRAF [Suspect]
     Dosage: NOT PROVIDED
     Route: 048
     Dates: start: 20071121, end: 20071123
  3. PANTOZOL [Concomitant]
     Dosage: 40/1-0-0
     Route: 065
  4. METOPROLOL SUCCINATE [Concomitant]
     Indication: HYPERTENSION
     Dosage: DOSE UNSPECIFIED/1-0-0
     Route: 065
  5. URSO FALK [Concomitant]
     Indication: CHOLELITHIASIS
     Dosage: 250/1-0-2
     Route: 065
  6. ENALAPRIL MALEATE [Concomitant]
     Indication: HYPERTENSION
     Dosage: 10/1-0-0
     Route: 065
  7. CELLCEPT [Concomitant]
     Indication: PROPHYLAXIS AGAINST TRANSPLANT REJECTION
     Dosage: 500 MG/1-0-1
     Route: 065
  8. AMLODIPINE [Concomitant]
     Indication: HYPERTENSION
     Dosage: DOSE UNSPECIFIED/1-0-0
     Route: 065

REACTIONS (1)
  - HEPATIC NEOPLASM MALIGNANT RECURRENT [None]
